FAERS Safety Report 13999176 (Version 1)
Quarter: 2017Q3

REPORT INFORMATION
  Report Type: Spontaneous
  Country: US (occurrence: US)
  Receive Date: 20170922
  Receipt Date: 20170922
  Transmission Date: 20171128
  Serious: No
  Sender: FDA-Public Use
  Company Number: US-009507513-1709USA006200

PATIENT
  Age: 36 Year
  Sex: Female
  Weight: 71.2 kg

DRUGS (1)
  1. NEXPLANON [Suspect]
     Active Substance: ETONOGESTREL
     Indication: CONTRACEPTION
     Dosage: 1 IMPLANT, 3 YEAR
     Route: 059
     Dates: start: 20170831

REACTIONS (2)
  - Breast pain [Unknown]
  - Breast discharge [Unknown]

NARRATIVE: CASE EVENT DATE: 20170910
